FAERS Safety Report 11717201 (Version 1)
Quarter: 2015Q4

REPORT INFORMATION
  Report Type: Report from Study
  Country: US (occurrence: US)
  Receive Date: 20151109
  Receipt Date: 20151109
  Transmission Date: 20160304
  Serious: Yes (Hospitalization)
  Sender: FDA-Public Use
  Company Number: US-EISAI MEDICAL RESEARCH-EC-2015-007061

PATIENT
  Sex: Female
  Weight: 62.1 kg

DRUGS (19)
  1. CALCIUM [Concomitant]
     Active Substance: CALCIUM
  2. SENOKOT [Concomitant]
     Active Substance: SENNOSIDES
  3. METOPROLOL [Concomitant]
     Active Substance: METOPROLOL
  4. CENTRUM [Concomitant]
     Active Substance: VITAMINS
  5. CRANBERRY. [Concomitant]
     Active Substance: CRANBERRY
  6. NIFEDIPINE. [Concomitant]
     Active Substance: NIFEDIPINE
  7. LENVIMA [Suspect]
     Active Substance: LENVATINIB
     Route: 048
     Dates: start: 20150508, end: 20150616
  8. LENVIMA [Suspect]
     Active Substance: LENVATINIB
     Route: 048
     Dates: start: 2015, end: 2015
  9. LENVIMA [Suspect]
     Active Substance: LENVATINIB
     Route: 048
     Dates: start: 20150619, end: 2015
  10. LISINOPRIL. [Concomitant]
     Active Substance: LISINOPRIL
  11. ADVIL [Concomitant]
     Active Substance: IBUPROFEN
  12. GLIPIZIDE ER [Concomitant]
     Active Substance: GLIPIZIDE
  13. SIMVASTATIN. [Concomitant]
     Active Substance: SIMVASTATIN
  14. FUROSEMIDE. [Concomitant]
     Active Substance: FUROSEMIDE
  15. LENVIMA [Suspect]
     Active Substance: LENVATINIB
     Indication: THYROID CANCER
     Route: 048
     Dates: start: 201505, end: 20150507
  16. TEMAZEPAM. [Concomitant]
     Active Substance: TEMAZEPAM
  17. LEVOTHYROXINE SODIUM. [Concomitant]
     Active Substance: LEVOTHYROXINE SODIUM
  18. ASPIRIN. [Concomitant]
     Active Substance: ASPIRIN
  19. OMEPRAZOLE. [Concomitant]
     Active Substance: OMEPRAZOLE

REACTIONS (20)
  - Vision blurred [Unknown]
  - Oedema peripheral [Unknown]
  - Gastric disorder [Recovering/Resolving]
  - Cough [Unknown]
  - Rash [Unknown]
  - Balance disorder [Unknown]
  - Paranasal sinus hypersecretion [Unknown]
  - Skin lesion [Recovering/Resolving]
  - Hospitalisation [Unknown]
  - Fluid retention [Recovering/Resolving]
  - Glossodynia [Not Recovered/Not Resolved]
  - Stomatitis [Unknown]
  - Gingival pain [Not Recovered/Not Resolved]
  - Skin ulcer [Unknown]
  - Blood pressure increased [Not Recovered/Not Resolved]
  - Weight increased [Recovering/Resolving]
  - Localised infection [Unknown]
  - Paraesthesia [Unknown]
  - Hypoaesthesia [Unknown]
  - Asthenia [Recovering/Resolving]

NARRATIVE: CASE EVENT DATE: 2015
